FAERS Safety Report 9818069 (Version 2)
Quarter: 2014Q1

REPORT INFORMATION
  Report Type: Spontaneous
  Country: US (occurrence: US)
  Receive Date: 20140115
  Receipt Date: 20140115
  Transmission Date: 20141002
  Serious: Yes (Hospitalization)
  Sender: FDA-Public Use
  Company Number: US-BEH-2011029927

PATIENT
  Age: 77 Year
  Sex: Female
  Weight: 59 kg

DRUGS (21)
  1. HIZENTRA [Suspect]
     Indication: IMMUNODEFICIENCY COMMON VARIABLE
     Route: 058
     Dates: start: 20101029
  2. HIZENTRA [Suspect]
     Dosage: (40 ML) VIA MULTIPLE SITES
     Route: 058
     Dates: start: 20110926
  3. HIZENTRA [Suspect]
     Dosage: 4 GM 20 ML VIAL
     Route: 058
  4. ASPIRIN [Concomitant]
  5. WAL-ITIN [Concomitant]
  6. ADVAIR [Concomitant]
  7. LIOTHYRONINE [Concomitant]
  8. BENICAR/HCTZ [Concomitant]
  9. OMEGA 3 [Concomitant]
  10. SYNTHROID [Concomitant]
  11. HEMAX [Concomitant]
  12. FLAXSEED [Concomitant]
  13. VITAMIN D [Concomitant]
  14. LASIX [Concomitant]
  15. CELEXA [Concomitant]
  16. SPIRIVA [Concomitant]
  17. CO-Q10 [Concomitant]
  18. STRESS B [Concomitant]
  19. ESTER C [Concomitant]
  20. MULTIVITAMINS [Concomitant]
  21. LEVAQUIN [Concomitant]

REACTIONS (2)
  - Hypertension [Unknown]
  - Bronchitis [Recovering/Resolving]
